FAERS Safety Report 7072724-1 (Version None)
Quarter: 2010Q4

REPORT INFORMATION
  Report Type: 
  Country: None (occurrence: None)
  Receive Date: 20101029
  Receipt Date: 20100303
  Transmission Date: 20110411
  Serious: No
  Sender: FDA-Public Use
  Company Number: A0848043A

PATIENT
  Age: 55 Year
  Sex: Female

DRUGS (6)
  1. ADVAIR DISKUS 100/50 [Suspect]
     Indication: ASTHMA
     Dosage: 1PUFF PER DAY
     Route: 055
     Dates: start: 20040101
  2. DILANTIN [Concomitant]
  3. TOPROL-XL [Concomitant]
  4. ENALAPRIL MALEATE [Concomitant]
  5. ACETAMINOPHEN [Concomitant]
  6. XOPENEX [Concomitant]

REACTIONS (7)
  - ARTHRALGIA [None]
  - COUGH [None]
  - INFLUENZA [None]
  - MUSCLE SWELLING [None]
  - MYALGIA [None]
  - PLEURISY [None]
  - TREATMENT NONCOMPLIANCE [None]
